FAERS Safety Report 19824320 (Version 2)
Quarter: 2021Q3

REPORT INFORMATION
  Report Type: Report from Study
  Country: DE (occurrence: DE)
  Receive Date: 20210913
  Receipt Date: 20210916
  Transmission Date: 20211014
  Serious: Yes (Life-Threatening, Hospitalization, Other)
  Sender: FDA-Public Use
  Company Number: DE-CELGENEUS-DEU-20210902533

PATIENT
  Age: 72 Year
  Sex: Male
  Weight: 75 kg

DRUGS (40)
  1. RITUXIMAB. [Concomitant]
     Active Substance: RITUXIMAB
     Route: 041
     Dates: start: 20200717
  2. RITUXIMAB. [Concomitant]
     Active Substance: RITUXIMAB
     Route: 041
     Dates: start: 20201201
  3. VINCRISTINE [Concomitant]
     Active Substance: VINCRISTINE
     Indication: CHRONIC LYMPHOCYTIC LEUKAEMIA
     Route: 065
     Dates: start: 20200717
  4. METHOTREXATE. [Concomitant]
     Active Substance: METHOTREXATE
     Route: 041
     Dates: start: 20200919
  5. RITUXIMAB. [Concomitant]
     Active Substance: RITUXIMAB
     Route: 041
     Dates: start: 20201031
  6. DEXAMETHASONE. [Concomitant]
     Active Substance: DEXAMETHASONE
     Indication: CHRONIC LYMPHOCYTIC LEUKAEMIA
     Route: 065
     Dates: start: 202007
  7. DEXAMETHASONE. [Concomitant]
     Active Substance: DEXAMETHASONE
     Route: 041
     Dates: start: 20201202
  8. DEXAMETHASONE. [Concomitant]
     Active Substance: DEXAMETHASONE
     Route: 041
     Dates: start: 20201203, end: 20201209
  9. CYCLOPHOSPHAMIDE. [Concomitant]
     Active Substance: CYCLOPHOSPHAMIDE
     Indication: CHRONIC LYMPHOCYTIC LEUKAEMIA
     Route: 065
     Dates: start: 20200717
  10. METHOTREXATE. [Concomitant]
     Active Substance: METHOTREXATE
     Indication: CHRONIC LYMPHOCYTIC LEUKAEMIA
     Route: 065
     Dates: start: 202008
  11. CYTARABINE. [Concomitant]
     Active Substance: CYTARABINE
     Route: 041
     Dates: start: 20210305
  12. LENALIDOMIDE [Suspect]
     Active Substance: LENALIDOMIDE
     Indication: CHRONIC LYMPHOCYTIC LEUKAEMIA
     Route: 048
     Dates: start: 20151001, end: 20171203
  13. RITUXIMAB. [Concomitant]
     Active Substance: RITUXIMAB
     Route: 041
     Dates: start: 20200918
  14. VINCRISTINE [Concomitant]
     Active Substance: VINCRISTINE
     Route: 065
     Dates: start: 20200807
  15. METHOTREXATE. [Concomitant]
     Active Substance: METHOTREXATE
     Route: 041
     Dates: start: 20210116
  16. METHOTREXATE. [Concomitant]
     Active Substance: METHOTREXATE
     Route: 041
     Dates: start: 20210402
  17. CYTARABINE. [Concomitant]
     Active Substance: CYTARABINE
     Indication: CHRONIC LYMPHOCYTIC LEUKAEMIA
     Route: 065
     Dates: start: 202008
  18. PREDNISOLON [Concomitant]
     Active Substance: PREDNISOLONE
     Indication: PRODUCT USED FOR UNKNOWN INDICATION
     Route: 041
     Dates: start: 20200717
  19. RITUXIMAB. [Concomitant]
     Active Substance: RITUXIMAB
     Route: 065
     Dates: start: 202008
  20. DEXAMETHASONE. [Concomitant]
     Active Substance: DEXAMETHASONE
     Route: 050
     Dates: start: 20201115, end: 20201119
  21. METHOTREXATE. [Concomitant]
     Active Substance: METHOTREXATE
     Route: 050
     Dates: start: 20201115, end: 20201119
  22. CYTARABINE. [Concomitant]
     Active Substance: CYTARABINE
     Route: 050
     Dates: start: 20201115, end: 20201119
  23. CYTARABINE. [Concomitant]
     Active Substance: CYTARABINE
     Route: 041
     Dates: start: 20210307
  24. CYTARABINE. [Concomitant]
     Active Substance: CYTARABINE
     Route: 050
     Dates: start: 20200402
  25. IDARUBICINE [Concomitant]
     Active Substance: IDARUBICIN
     Route: 041
     Dates: start: 20201202
  26. FORTECORTIN [Concomitant]
     Active Substance: DEXAMETHASONE
     Indication: PRODUCT USED FOR UNKNOWN INDICATION
     Route: 050
     Dates: start: 20210402
  27. IBRUTINIB [Concomitant]
     Active Substance: IBRUTINIB
     Indication: CHRONIC LYMPHOCYTIC LEUKAEMIA
     Route: 065
     Dates: start: 201903, end: 202006
  28. RITUXIMAB. [Concomitant]
     Active Substance: RITUXIMAB
     Indication: CHRONIC LYMPHOCYTIC LEUKAEMIA
     Route: 065
     Dates: start: 201412, end: 201505
  29. VINCRISTINE [Concomitant]
     Active Substance: VINCRISTINE
     Route: 041
     Dates: start: 20201202
  30. DOXORUBICINE [Concomitant]
     Active Substance: DOXORUBICIN
     Indication: CHRONIC LYMPHOCYTIC LEUKAEMIA
     Route: 065
     Dates: start: 20200717
  31. METHOTREXATE. [Concomitant]
     Active Substance: METHOTREXATE
     Route: 041
     Dates: start: 20210204
  32. METHOTREXATE. [Concomitant]
     Active Substance: METHOTREXATE
     Route: 050
     Dates: start: 20210402
  33. METHOTREXATE. [Concomitant]
     Active Substance: METHOTREXATE
     Route: 041
     Dates: start: 20210422
  34. IDARUBICINE [Concomitant]
     Active Substance: IDARUBICIN
     Indication: CHRONIC LYMPHOCYTIC LEUKAEMIA
     Route: 041
     Dates: start: 20200807
  35. RITUXIMAB. [Concomitant]
     Active Substance: RITUXIMAB
     Route: 041
     Dates: start: 20210115
  36. DEXAMETHASONE. [Concomitant]
     Active Substance: DEXAMETHASONE
     Route: 065
     Dates: start: 20200807
  37. CYTOSIN?ARABINOSID [Concomitant]
     Indication: PRODUCT USED FOR UNKNOWN INDICATION
     Route: 041
     Dates: start: 20201214, end: 20201217
  38. METHOTREXATE. [Concomitant]
     Active Substance: METHOTREXATE
     Route: 041
     Dates: start: 20201007
  39. CYTARABINE. [Concomitant]
     Active Substance: CYTARABINE
     Route: 041
  40. CYTARABINE. [Concomitant]
     Active Substance: CYTARABINE
     Route: 041
     Dates: start: 20210309

REACTIONS (1)
  - Acute lymphocytic leukaemia [Recovering/Resolving]

NARRATIVE: CASE EVENT DATE: 20200720
